FAERS Safety Report 7527128-1 (Version None)
Quarter: 2011Q2

REPORT INFORMATION
  Report Type: 
  Country: None (occurrence: None)
  Receive Date: 20110607
  Receipt Date: 20110531
  Transmission Date: 20111010
  Serious: Yes (Hospitalization)
  Sender: FDA-Public Use
  Company Number: SG-BRISTOL-MYERS SQUIBB COMPANY-15698145

PATIENT
  Age: 63 Year
  Sex: Male
  Weight: 82 kg

DRUGS (10)
  1. NECITUMUMAB [Suspect]
     Indication: NON-SMALL CELL LUNG CANCER STAGE IV
     Dosage: NECITUMUMAB LIQIUD 24MAR2011-01APR2011(9 DAYS) INTERRUPTED ON 13APR2011,RESUMED ON 27APR11
     Route: 042
     Dates: start: 20110324
  2. GEMZAR [Suspect]
     Indication: NON-SMALL CELL LUNG CANCER STAGE IV
     Dosage: LAST DOSE ON 01APR2011, DUR: 9 DAYS. INTERRUPTED ON 13APR2011,RESUMED ON 27APR11
     Route: 042
     Dates: start: 20110324
  3. SIMVASTATIN [Concomitant]
  4. CISPLATIN [Suspect]
     Indication: NON-SMALL CELL LUNG CANCER STAGE IV
     Dosage: LAST DOSE ON 24MAR2011-24MAR11=1DAY INTERRUPTED ON 13APR2011,RESUMED ON 27APR11 WITH DOSE REDUCED
     Route: 042
     Dates: start: 20110324
  5. VENTOLIN HFA [Concomitant]
     Dosage: VENTOLIN HFA
  6. BISOPROLOL FUMARATE [Concomitant]
  7. CORTICOSTEROID [Concomitant]
  8. PROCODIN [Concomitant]
  9. PERMIXON [Concomitant]
  10. PLAVIX [Concomitant]
     Dates: start: 20010101, end: 20110413

REACTIONS (1)
  - GASTRODUODENAL ULCER [None]
